FAERS Safety Report 19625877 (Version 2)
Quarter: 2021Q3

REPORT INFORMATION
  Report Type: Report from Study
  Country: US (occurrence: US)
  Receive Date: 20210729
  Receipt Date: 20210904
  Transmission Date: 20211014
  Serious: No
  Sender: FDA-Public Use
  Company Number: NVSC2021US148201

PATIENT
  Sex: Male
  Weight: 68.03 kg

DRUGS (1)
  1. TREPROSTINIL. [Suspect]
     Active Substance: TREPROSTINIL
     Indication: PULMONARY ARTERIAL HYPERTENSION
     Dosage: 120 UNK (NG/KG/MIN)
     Route: 042
     Dates: start: 20190813

REACTIONS (3)
  - Oral infection [Unknown]
  - Gingival bleeding [Unknown]
  - Gingival swelling [Unknown]
